FAERS Safety Report 6120407-4 (Version None)
Quarter: 2009Q1

REPORT INFORMATION
  Report Type: 
  Country: None (occurrence: None)
  Receive Date: 20090317
  Receipt Date: 20090305
  Transmission Date: 20090719
  Serious: Yes (Other)
  Sender: FDA-Public Use
  Company Number: PHHY2009FR08000

PATIENT
  Sex: Female

DRUGS (4)
  1. TRILEPTAL [Suspect]
     Indication: TRIGEMINAL NEURALGIA
     Dosage: 1450 MG
     Route: 048
     Dates: start: 20020902
  2. CALCIUM CARBONATE [Concomitant]
  3. IBANDRONIC ACID [Concomitant]
  4. TITANOREINE [Concomitant]

REACTIONS (3)
  - DEPRESSION [None]
  - SCIATICA [None]
  - SURGERY [None]
